FAERS Safety Report 26005567 (Version 1)
Quarter: 2025Q4

REPORT INFORMATION
  Report Type: Spontaneous
  Country: US (occurrence: US)
  Receive Date: 20251106
  Receipt Date: 20251106
  Transmission Date: 20260118
  Serious: Yes (Hospitalization, Other)
  Sender: DR REDDYS
  Company Number: US-DRL-USA-USA/2025/10/016490

PATIENT
  Age: 71 Year
  Sex: Female

DRUGS (1)
  1. TACROLIMUS [Suspect]
     Active Substance: TACROLIMUS
     Indication: Immunosuppressant drug therapy

REACTIONS (4)
  - Thrombotic microangiopathy [Unknown]
  - Microangiopathic haemolytic anaemia [Unknown]
  - Haematochezia [Recovered/Resolved]
  - Pancytopenia [Unknown]
